FAERS Safety Report 13164701 (Version 1)
Quarter: 2017Q1

REPORT INFORMATION
  Report Type: Spontaneous
  Country: US (occurrence: US)
  Receive Date: 20170130
  Receipt Date: 20170130
  Transmission Date: 20170428
  Serious: Yes (Other)
  Sender: FDA-Public Use
  Company Number: US-PFIZER INC-2017033557

PATIENT
  Age: 71 Year
  Sex: Female

DRUGS (1)
  1. ESTRADIOL. [Suspect]
     Active Substance: ESTRADIOL
     Dosage: UNK

REACTIONS (9)
  - Peripheral swelling [Unknown]
  - Nervousness [Unknown]
  - Depression [Unknown]
  - Dizziness [Unknown]
  - Headache [Unknown]
  - Vision blurred [Unknown]
  - Drug hypersensitivity [Unknown]
  - Dysarthria [Unknown]
  - Rhinorrhoea [Unknown]
